FAERS Safety Report 7632526-1 (Version None)
Quarter: 2011Q3

REPORT INFORMATION
  Report Type: 
  Country: None (occurrence: None)
  Receive Date: 20110725
  Receipt Date: 20100930
  Transmission Date: 20111222
  Serious: No
  Sender: FDA-Public Use
  Company Number: US-BRISTOL-MYERS SQUIBB COMPANY-15312382

PATIENT
  Age: 80 Year
  Sex: Female
  Weight: 82 kg

DRUGS (12)
  1. VITAMIN TAB [Concomitant]
  2. VITAMIN D [Concomitant]
  3. LANTUS [Concomitant]
     Dosage: 1DF=18UNITS
  4. TOPROL-XL [Concomitant]
  5. COUMADIN [Suspect]
     Indication: THROMBOSIS
     Dosage: CURRENT DOSE:3MG/DAY
     Dates: start: 20100501
  6. LIPITOR [Concomitant]
  7. GLIMEPIRIDE [Concomitant]
  8. NEXIUM [Concomitant]
  9. SINGULAIR [Concomitant]
  10. JANUVIA [Concomitant]
  11. INSULIN [Concomitant]
  12. AVALIDE [Concomitant]
     Dosage: 1DF=150/12.5 MG

REACTIONS (1)
  - INTERNATIONAL NORMALISED RATIO DECREASED [None]
